FAERS Safety Report 18610496 (Version 1)
Quarter: 2020Q4

REPORT INFORMATION
  Report Type: Spontaneous
  Country: US (occurrence: US)
  Receive Date: 20201214
  Receipt Date: 20201214
  Transmission Date: 20210114
  Serious: Yes (Hospitalization)
  Sender: FDA-Public Use
  Company Number: US-TEVA-2020-US-1858150

PATIENT
  Age: 77 Year
  Sex: Male

DRUGS (1)
  1. TRIAMCINOLONE [Suspect]
     Active Substance: TRIAMCINOLONE
     Indication: MACULAR FIBROSIS
     Route: 050

REACTIONS (1)
  - Eye infection toxoplasmal [Recovering/Resolving]
